FAERS Safety Report 4872019-8 (Version None)
Quarter: 2005Q4

REPORT INFORMATION
  Report Type: 
  Country: None (occurrence: None)
  Receive Date: 20051230
  Receipt Date: 20051214
  Transmission Date: 20060501
  Serious: Yes (Death, Hospitalization, Other)
  Sender: FDA-Public Use
  Company Number: US_0508120856

PATIENT
  Age: 82 Year
  Sex: Female
  Weight: 81.6 kg

DRUGS (17)
  1. ZYPREXA [Suspect]
     Dosage: 2.5 MG, DAILY (1/D), ORAL
     Route: 048
     Dates: start: 20020501
  2. COREG [Concomitant]
  3. DESYREL [Concomitant]
  4. POTASSIUM CHLORIDE [Concomitant]
  5. LASIX [Concomitant]
  6. NITROGLYCERIN TRANSDERMAL SYSTEM (GLYCERYL TRINITRATE) [Concomitant]
  7. COLACE (DOCUSATE SODIUM) [Concomitant]
  8. PREVACID [Concomitant]
  9. CATAFLAN (DICLOFENAC SODIUM) [Concomitant]
  10. NEURONTIN [Concomitant]
  11. FLEXERIL [Concomitant]
  12. CALCIUM WITH VITAMIN D(CALCIUM PHOSPHATE, CALCIUM SODIUM LACTATE, ERGO [Concomitant]
  13. NORVASC /DEN/(AMLODIPINE BESILATE) [Concomitant]
  14. REGLAN /USA/(METOCLOPRAMIDE HYDROCHLORIDE) [Concomitant]
  15. PROVERA [Concomitant]
  16. ASPIRIN [Concomitant]
  17. LORTAB [Concomitant]

REACTIONS (20)
  - ABNORMAL BEHAVIOUR [None]
  - ANAEMIA [None]
  - CARDIAC FAILURE CONGESTIVE [None]
  - CARDIO-RESPIRATORY ARREST [None]
  - CARDIO-RESPIRATORY DISTRESS [None]
  - COGNITIVE DETERIORATION [None]
  - CONDITION AGGRAVATED [None]
  - CONFUSIONAL STATE [None]
  - DEPRESSED LEVEL OF CONSCIOUSNESS [None]
  - DYSARTHRIA [None]
  - ESCHERICHIA SEPSIS [None]
  - FLUID OVERLOAD [None]
  - GASTROINTESTINAL HAEMORRHAGE [None]
  - GENERAL PHYSICAL HEALTH DETERIORATION [None]
  - HAEMATOCHEZIA [None]
  - HYPOTENSION [None]
  - MOOD ALTERED [None]
  - PANCREATITIS ACUTE [None]
  - PLATELET COUNT INCREASED [None]
  - RENAL FAILURE ACUTE [None]
